FAERS Safety Report 18627597 (Version 1)
Quarter: 2020Q4

REPORT INFORMATION
  Report Type: Spontaneous
  Country: US (occurrence: US)
  Receive Date: 20201216
  Receipt Date: 20201216
  Transmission Date: 20210114
  Serious: Yes (Hospitalization)
  Sender: FDA-Public Use
  Company Number: None

PATIENT
  Sex: Female

DRUGS (11)
  1. NORTTHIN ACE [Concomitant]
  2. NEULASTA [Suspect]
     Active Substance: PEGFILGRASTIM
     Indication: BONE CANCER
     Route: 058
     Dates: start: 20200808
  3. DRONABINOL. [Concomitant]
     Active Substance: DRONABINOL
  4. LIDO/PRILOCN CRE [Concomitant]
  5. POT CHLORIDE ER [Concomitant]
  6. CEPHALXEN [Concomitant]
  7. CYPROHEPTAD [Concomitant]
  8. DULOXETINE. [Concomitant]
     Active Substance: DULOXETINE
  9. OXYCODONE [Concomitant]
     Active Substance: OXYCODONE
  10. LORAZEPAM. [Concomitant]
     Active Substance: LORAZEPAM
  11. ONDANSETRON [Concomitant]
     Active Substance: ONDANSETRON

REACTIONS (11)
  - Fungal infection [None]
  - Postoperative wound infection [None]
  - Drug hypersensitivity [None]
  - Pyrexia [None]
  - Mucosal inflammation [None]
  - Asthenia [None]
  - Dizziness [None]
  - Therapy interrupted [None]
  - Red man syndrome [None]
  - Skin disorder [None]
  - Knee arthroplasty [None]
